FAERS Safety Report 8520867-5 (Version None)
Quarter: 2012Q2

REPORT INFORMATION
  Report Type: 
  Country: None (occurrence: None)
  Receive Date: 20120409
  Receipt Date: 20120313
  Transmission Date: 20120825
  Serious: Yes (Other)
  Sender: FDA-Public Use
  Company Number: PHEH2012US002188

PATIENT
  Age: 48 Year
  Sex: Male

DRUGS (3)
  1. VALTURNA [Suspect]
     Dosage: 160 VALS AND 150 MG ALIS, QD, ORAL
     Route: 048
     Dates: start: 20100305, end: 20100503
  2. MICARDIS HCT [Suspect]
     Indication: HYPERTENSION
     Dosage: 80 MG HYDRO AND 25 MG TELMI, QD, ORAL
     Route: 048
     Dates: start: 20091231, end: 20100304
  3. POTASSIUM CHLORIDE [Concomitant]

REACTIONS (2)
  - BLOOD POTASSIUM DECREASED [None]
  - BLOOD PRESSURE DECREASED [None]
